FAERS Safety Report 21269133 (Version 1)
Quarter: 2022Q3

REPORT INFORMATION
  Report Type: Spontaneous
  Country: US (occurrence: None)
  Receive Date: 20220829
  Receipt Date: 20220829
  Transmission Date: 20221027
  Serious: No
  Sender: FDA-Public Use
  Company Number: None

PATIENT
  Age: 55 Year
  Sex: Female

DRUGS (1)
  1. ENVARSUS XR [Suspect]
     Active Substance: TACROLIMUS
     Dosage: 11MG DAILY ORAL
     Route: 048
     Dates: start: 2022

REACTIONS (2)
  - Lung disorder [None]
  - Pulmonary valve stenosis [None]

NARRATIVE: CASE EVENT DATE: 20220819
